FAERS Safety Report 6432902-9 (Version None)
Quarter: 2009Q4

REPORT INFORMATION
  Report Type: 
  Country: None (occurrence: None)
  Receive Date: 20091109
  Receipt Date: 20091030
  Transmission Date: 20100525
  Serious: Yes (Life-Threatening, Hospitalization)
  Sender: FDA-Public Use
  Company Number: DE-MERCK-0911USA01032

PATIENT
  Age: 37 Year
  Sex: Female

DRUGS (4)
  1. PRINIVIL [Suspect]
     Route: 048
     Dates: start: 20090923
  2. METHYLDOPA [Suspect]
     Route: 065
     Dates: start: 20090923
  3. MOLSIDOMINE [Suspect]
     Route: 065
     Dates: start: 20090923
  4. NITRENDIPINE [Suspect]
     Route: 065
     Dates: start: 20090923

REACTIONS (3)
  - CARDIOGENIC SHOCK [None]
  - INTENTIONAL OVERDOSE [None]
  - SUICIDE ATTEMPT [None]
